FAERS Safety Report 7623787-3 (Version None)
Quarter: 2011Q3

REPORT INFORMATION
  Report Type: 
  Country: None (occurrence: None)
  Receive Date: 20110720
  Receipt Date: 20110718
  Transmission Date: 20111222
  Serious: No
  Sender: FDA-Public Use
  Company Number: US-TEVA-290998USA

PATIENT
  Sex: Male
  Weight: 65.83 kg

DRUGS (5)
  1. POTASSIUM CHLORIDE [Concomitant]
  2. AZILECT [Suspect]
     Indication: PARKINSON'S DISEASE
     Dosage: .5 MILLIGRAM;
     Route: 048
     Dates: start: 20110629, end: 20110717
  3. STALEVO 100 [Concomitant]
  4. MIDODRINE HYDROCHLORIDE [Concomitant]
     Dosage: 1.5 MILLIGRAM;
  5. FLUDROCORTISONE ACETATE [Concomitant]

REACTIONS (3)
  - CONFUSIONAL STATE [None]
  - DYSSTASIA [None]
  - GAIT DISTURBANCE [None]
